FAERS Safety Report 12617896 (Version 1)
Quarter: 2016Q3

REPORT INFORMATION
  Report Type: Spontaneous
  Country: US (occurrence: None)
  Receive Date: 20160802
  Receipt Date: 20160802
  Transmission Date: 20161109
  Serious: No
  Sender: FDA-Public Use
  Company Number: None

PATIENT
  Age: 42 Year
  Sex: Female
  Weight: 79.38 kg

DRUGS (3)
  1. LOSARTAN. [Concomitant]
     Active Substance: LOSARTAN
  2. LORAZEPAM. [Concomitant]
     Active Substance: LORAZEPAM
  3. MIRVASO [Suspect]
     Active Substance: BRIMONIDINE TARTRATE
     Indication: ROSACEA
     Dosage: 1 ^PEA-SIZED^ EVERY 12 HOURS  APPLIED TO A SURFACE, USUALLY THE SKIN
     Dates: start: 20160722, end: 20160731

REACTIONS (7)
  - Rosacea [None]
  - Ocular discomfort [None]
  - Burning sensation [None]
  - Headache [None]
  - Flushing [None]
  - Nasal congestion [None]
  - Erythema [None]

NARRATIVE: CASE EVENT DATE: 20160731
